FAERS Safety Report 5873990-8 (Version None)
Quarter: 2008Q3

REPORT INFORMATION
  Report Type: 
  Country: None (occurrence: None)
  Receive Date: 20080908
  Receipt Date: 20080825
  Transmission Date: 20090109
  Serious: Yes (Hospitalization, Other)
  Sender: FDA-Public Use
  Company Number: AU-ELI_LILLY_AND_COMPANY-AU200808005980

PATIENT
  Age: 29 Year
  Sex: Male

DRUGS (1)
  1. ZYPREXA [Suspect]
     Indication: SCHIZOPHRENIA, PARANOID TYPE
     Dosage: UNK, UNKNOWN
     Route: 065

REACTIONS (3)
  - DIABETES MELLITUS [None]
  - HYPERGLYCAEMIC HYPEROSMOLAR NONKETOTIC SYNDROME [None]
  - RENAL FAILURE ACUTE [None]
